FAERS Safety Report 25198503 (Version 1)
Quarter: 2025Q2

REPORT INFORMATION
  Report Type: Report from Study
  Country: CL (occurrence: CL)
  Receive Date: 20250415
  Receipt Date: 20250415
  Transmission Date: 20250717
  Serious: Yes (Other)
  Sender: JOHNSON AND JOHNSON
  Company Number: CL-JNJFOC-20250405896

PATIENT
  Age: 62 Year
  Sex: Female

DRUGS (1)
  1. SIMPONI [Suspect]
     Active Substance: GOLIMUMAB
     Indication: Psoriatic arthropathy
     Route: 058
     Dates: start: 20240729

REACTIONS (4)
  - Spondylitis [Unknown]
  - Urinary tract infection [Unknown]
  - Tonsillitis [Unknown]
  - Protein total increased [Unknown]

NARRATIVE: CASE EVENT DATE: 20250301
